FAERS Safety Report 7596825-4 (Version None)
Quarter: 2011Q3

REPORT INFORMATION
  Report Type: 
  Country: None (occurrence: None)
  Receive Date: 20110708
  Receipt Date: 20110629
  Transmission Date: 20111222
  Serious: Yes (Other)
  Sender: FDA-Public Use
  Company Number: IL-ALLERGAN-1109013US

PATIENT
  Age: 66 Year
  Sex: Male

DRUGS (10)
  1. ATROPINE [Concomitant]
     Indication: PRODUCT USED FOR UNKNOWN INDICATION
     Dosage: UNK
     Route: 061
  2. DEXAMETHASONE [Suspect]
     Dosage: 0.4 MG/0.08 CC
     Route: 031
  3. CEFTAZIDIME [Concomitant]
     Dosage: 2.25 MG/0.1 CC
     Route: 061
  4. DEXAMETHASONE [Suspect]
     Indication: PRODUCT USED FOR UNKNOWN INDICATION
     Dosage: TID
     Route: 061
  5. OFLOXACIN UNK [Concomitant]
     Indication: PRODUCT USED FOR UNKNOWN INDICATION
     Dosage: UNK
     Route: 061
  6. VANCOMYCIN [Concomitant]
     Indication: PRODUCT USED FOR UNKNOWN INDICATION
     Dosage: UNK
     Route: 061
  7. CEFTAZIDIME [Concomitant]
     Indication: PRODUCT USED FOR UNKNOWN INDICATION
     Dosage: UNK
     Route: 061
  8. DEXAMETHASONE [Suspect]
     Dosage: BID
     Route: 061
  9. VANCOMYCIN [Concomitant]
     Dosage: 1 MG/0.1 CC
     Route: 031
  10. VIGAMOX [Concomitant]
     Indication: PRODUCT USED FOR UNKNOWN INDICATION
     Dosage: UNK
     Route: 061

REACTIONS (2)
  - ENDOPHTHALMITIS [None]
  - WOUND DEHISCENCE [None]
